FAERS Safety Report 6757100-0 (Version None)
Quarter: 2010Q2

REPORT INFORMATION
  Report Type: 
  Country: None (occurrence: None)
  Receive Date: 20100604
  Receipt Date: 20100524
  Transmission Date: 20101027
  Serious: Yes (Hospitalization)
  Sender: FDA-Public Use
  Company Number: US-ELI_LILLY_AND_COMPANY-US201005006889

PATIENT
  Sex: Female

DRUGS (4)
  1. FORTEO [Suspect]
     Indication: OSTEOPOROSIS
     Dosage: 20 UG, DAILY (1/D)
  2. DILAUDID [Concomitant]
  3. BACLOFEN [Concomitant]
     Indication: SPINAL CORD INJURY
     Dosage: 20 MG, 3/D
  4. SYNTHROID [Concomitant]

REACTIONS (4)
  - CHEST DISCOMFORT [None]
  - EATING DISORDER [None]
  - SMALL INTESTINAL OBSTRUCTION [None]
  - WEIGHT DECREASED [None]
